FAERS Safety Report 15821355 (Version 2)
Quarter: 2019Q1

REPORT INFORMATION
  Report Type: Report from Study
  Country: US (occurrence: US)
  Receive Date: 20190114
  Receipt Date: 20190327
  Transmission Date: 20190417
  Serious: Yes (Other)
  Sender: FDA-Public Use
  Company Number: US-SAKK-2019SA008077AA

PATIENT
  Age: 78 Year
  Sex: Male

DRUGS (1)
  1. INSULIN GLARGINE [Suspect]
     Active Substance: INSULIN GLARGINE
     Dosage: 30 U, UNK
     Route: 058

REACTIONS (6)
  - Ear infection [Recovering/Resolving]
  - Arthritis [Unknown]
  - Renal disorder [Unknown]
  - Blood glucose abnormal [Unknown]
  - Cerebrovascular accident [Unknown]
  - Skin cancer [Recovered/Resolved]

NARRATIVE: CASE EVENT DATE: 20180620
